FAERS Safety Report 7138223-3 (Version None)
Quarter: 2010Q4

REPORT INFORMATION
  Report Type: 
  Country: None (occurrence: None)
  Receive Date: 20101206
  Receipt Date: 20101130
  Transmission Date: 20110411
  Serious: Yes (Other)
  Sender: FDA-Public Use
  Company Number: US-ROCHE-741630

PATIENT
  Sex: Male
  Weight: 78 kg

DRUGS (2)
  1. ACTEMRA [Suspect]
     Dosage: FORM: INFUSION; 8 MG/KG
     Route: 042
     Dates: start: 20101013, end: 20101110
  2. PREDNISONE [Concomitant]
     Dosage: FREQUENCY NOT LEGIBLE
     Route: 048
     Dates: start: 20090130

REACTIONS (7)
  - CHILLS [None]
  - CYANOSIS [None]
  - FLUSHING [None]
  - HYPOTENSION [None]
  - OROPHARYNGEAL DISCOMFORT [None]
  - TACHYCARDIA [None]
  - TREMOR [None]
